FAERS Safety Report 10044225 (Version 3)
Quarter: 2014Q2

REPORT INFORMATION
  Report Type: Spontaneous
  Country: JP (occurrence: JP)
  Receive Date: 20140328
  Receipt Date: 20140410
  Transmission Date: 20141212
  Serious: No
  Sender: FDA-Public Use
  Company Number: JP-AMGEN-JPNSP2014021997

PATIENT
  Age: 72 Year
  Sex: Male

DRUGS (3)
  1. ARANESP [Suspect]
     Indication: NEPHROGENIC ANAEMIA
     Dosage: 30 MUG, Q2WK
     Route: 058
     Dates: start: 20140121, end: 201403
  2. TAKEPRON [Concomitant]
     Dosage: 30 MG, UNK
     Route: 065
  3. GASLON [Concomitant]
     Dosage: 2 MG, UNK
     Route: 048

REACTIONS (1)
  - Iron deficiency anaemia [Recovered/Resolved]
